FAERS Safety Report 21222846 (Version 3)
Quarter: 2022Q3

REPORT INFORMATION
  Report Type: Spontaneous
  Country: CA (occurrence: CA)
  Receive Date: 20220817
  Receipt Date: 20220927
  Transmission Date: 20221026
  Serious: Yes (Other)
  Sender: FDA-Public Use
  Company Number: CA-PFIZER INC-202200498657

PATIENT
  Age: 20 Year
  Sex: Female
  Weight: 56.8 kg

DRUGS (7)
  1. ABRILADA [Suspect]
     Active Substance: ADALIMUMAB-AFZB
     Indication: Juvenile idiopathic arthritis
     Dosage: 40 MG, EVERY 2 WEEK, PREFILLED SYRINGE
     Route: 058
     Dates: start: 20220327
  2. ABRILADA [Suspect]
     Active Substance: ADALIMUMAB-AFZB
     Dosage: 40 MG  EVERY 2 WEEK, PREFILLED SYRINGE
     Route: 058
     Dates: start: 202208
  3. ABRILADA [Suspect]
     Active Substance: ADALIMUMAB-AFZB
     Dosage: 40 MG, EVERY 2 WEEK, PREFILLED SYRINGE
     Route: 058
     Dates: start: 20220821
  4. CELECOXIB [Concomitant]
     Active Substance: CELECOXIB
     Dosage: 1 DF, DOSAGE NOT AVAILABLE
     Route: 065
  5. LOESTRIN NOS [Concomitant]
     Active Substance: ETHINYL ESTRADIOL\NORETHINDRONE ACETATE
     Dosage: UNK
  6. LOESTRIN NOS [Concomitant]
     Active Substance: ETHINYL ESTRADIOL\NORETHINDRONE ACETATE
     Dosage: 1 DF
  7. METHOTREXATE [Concomitant]
     Active Substance: METHOTREXATE
     Dosage: 1 DF
     Route: 065

REACTIONS (5)
  - Pneumonia [Recovered/Resolved]
  - COVID-19 [Recovering/Resolving]
  - Productive cough [Not Recovered/Not Resolved]
  - Off label use [Unknown]
  - Intentional dose omission [Unknown]

NARRATIVE: CASE EVENT DATE: 20220701
